FAERS Safety Report 6171284-7 (Version None)
Quarter: 2009Q2

REPORT INFORMATION
  Report Type: 
  Country: None (occurrence: None)
  Receive Date: 20090428
  Receipt Date: 20090428
  Transmission Date: 20091009
  Serious: No
  Sender: FDA-Public Use
  Company Number: None

PATIENT
  Sex: Male
  Weight: 104.3273 kg

DRUGS (3)
  1. RISPERDAL [Suspect]
     Indication: SCHIZOPHRENIA
     Dosage: 2MG TWICE DAILY PO
     Route: 048
     Dates: start: 20081108, end: 20090425
  2. BUPROPION HCL [Concomitant]
  3. LAMOTRIGINE [Concomitant]

REACTIONS (4)
  - DEREALISATION [None]
  - EJACULATION FAILURE [None]
  - ERECTILE DYSFUNCTION [None]
  - LIBIDO DECREASED [None]
